FAERS Safety Report 7337529-2 (Version None)
Quarter: 2011Q1

REPORT INFORMATION
  Report Type: 
  Country: None (occurrence: None)
  Receive Date: 20110308
  Receipt Date: 20091122
  Transmission Date: 20110831
  Serious: Yes (Death, Other)
  Sender: FDA-Public Use
  Company Number: US-BAYER-200940482NA

PATIENT
  Sex: Male
  Weight: 77.098 kg

DRUGS (15)
  1. ATENOLOL [Concomitant]
     Dosage: 25 MG, UNK
     Route: 048
     Dates: start: 20000108
  2. TRASYLOL [Suspect]
     Indication: CORONARY ARTERY BYPASS
     Dosage: 4 200 ML INJECTIONS
     Route: 042
     Dates: start: 20000112
  3. NITROGLYCERIN [Concomitant]
     Dosage: UNK
     Route: 042
     Dates: start: 20000108
  4. OMNIPAQUE 140 [Concomitant]
     Dosage: 150 ML, UNK
  5. ARAMINE [Concomitant]
     Dosage: UNK
     Dates: start: 20000108
  6. PROTAMINE SULFATE [Concomitant]
     Dosage: 25 ML, UNK
     Route: 042
     Dates: start: 20000111, end: 20000113
  7. NITROSTAT [Concomitant]
     Dosage: UNK
     Route: 042
     Dates: start: 20000108
  8. LIDOCAINE [Concomitant]
     Dosage: UNK
     Dates: start: 20000108
  9. CALCIUM CHLORIDE [Concomitant]
     Dosage: 1 G, UNK
     Route: 042
     Dates: start: 20000111
  10. MANNITOL [Concomitant]
     Dosage: 12.5 G, UNK
     Dates: start: 20000111
  11. ZINACEF [Concomitant]
     Dosage: 1.5 G, UNK
     Route: 042
     Dates: start: 20000111
  12. EPINEPHRINE [Concomitant]
     Dosage: 1 ML, UNK
     Dates: start: 20000108
  13. POTASSIUM CHLORIDE [Concomitant]
     Dosage: 60 MEQ, UNK
     Route: 042
     Dates: start: 20000109
  14. HEPARIN [Concomitant]
     Dosage: UNK
     Dates: start: 20000108, end: 20000113
  15. ACETYLSALICYLIC ACID (} 100 MG, FAST RELEASE) [Concomitant]
     Dosage: 325 MG, UNK
     Route: 048
     Dates: start: 20000108

REACTIONS (14)
  - RENAL IMPAIRMENT [None]
  - MULTI-ORGAN FAILURE [None]
  - EMOTIONAL DISTRESS [None]
  - MENTAL DISORDER [None]
  - FEAR [None]
  - PAIN [None]
  - ANHEDONIA [None]
  - RENAL FAILURE [None]
  - ANXIETY [None]
  - UNEVALUABLE EVENT [None]
  - DEATH [None]
  - RENAL INJURY [None]
  - STRESS [None]
  - INJURY [None]
